FAERS Safety Report 5430299-4 (Version None)
Quarter: 2007Q3

REPORT INFORMATION
  Report Type: 
  Country: None (occurrence: None)
  Receive Date: 20070828
  Receipt Date: 20070813
  Transmission Date: 20080115
  Serious: Yes (Other)
  Sender: FDA-Public Use
  Company Number: 2007RR-09315

PATIENT
  Age: 31 Year
  Sex: Male

DRUGS (2)
  1. CLARITHROMYCIN [Suspect]
     Dosage: ORAL
     Route: 048
  2. MEGESTROL ACETATE [Suspect]

REACTIONS (1)
  - AGRANULOCYTOSIS [None]
